FAERS Safety Report 7239425-8 (Version None)
Quarter: 2011Q1

REPORT INFORMATION
  Report Type: 
  Country: None (occurrence: None)
  Receive Date: 20110121
  Receipt Date: 20110113
  Transmission Date: 20110831
  Serious: Yes (Hospitalization, Other)
  Sender: FDA-Public Use
  Company Number: PHEH2006US04085

PATIENT
  Sex: Female
  Weight: 69.841 kg

DRUGS (25)
  1. DEXAMETHASONE [Concomitant]
  2. COMPAZINE [Concomitant]
     Dosage: 10 MG
  3. METRONIDAZOL ^ALPHARMA^ [Concomitant]
     Dosage: 250 MG, TID
     Route: 048
     Dates: start: 20071001
  4. THALIDOMIDE [Concomitant]
     Indication: MULTIPLE MYELOMA
     Dosage: 100MG QD
  5. TAMOXIFEN [Concomitant]
     Indication: BREAST CANCER
     Dates: start: 19990201, end: 20031027
  6. FLECAINIDE [Concomitant]
     Indication: ATRIAL FIBRILLATION
  7. LASIX [Concomitant]
     Dosage: 20 MG, QOD
     Route: 048
     Dates: start: 20060915
  8. CYMBALTA [Concomitant]
     Dosage: 60 MG, QD
     Route: 048
     Dates: start: 20060916
  9. CIPROFLOXACIN [Concomitant]
     Dosage: 500 MG, BID
     Route: 048
     Dates: start: 20071001
  10. AMITRIPTYLINE [Concomitant]
     Dosage: 10 MG, BID
     Route: 048
     Dates: start: 20050216
  11. PROPOXYPHENE HCL AND ACETAMINOPHEN [Concomitant]
     Dosage: 100-650MG, PRN
     Route: 048
     Dates: start: 20050515
  12. POTASSIUM CHLORIDE [Concomitant]
     Dosage: 20 MEQ, QOD
     Route: 048
     Dates: start: 20060805
  13. AREDIA [Suspect]
     Indication: METASTASES TO BONE
     Dates: start: 20010723
  14. GLIPIZIDE [Concomitant]
  15. ATIVAN [Concomitant]
     Dosage: 1 MG
  16. NEUPOGEN [Concomitant]
  17. TYLENOL-500 [Concomitant]
     Dosage: 650 MG
  18. PROCHLORPERAZINE [Concomitant]
  19. MOBIC [Concomitant]
     Dosage: 7.5 MG, PRN
     Route: 048
     Dates: start: 20050225
  20. FEXOFENADINE HCL [Concomitant]
     Dosage: 100 MG, QD
     Route: 048
     Dates: start: 20060815
  21. ZOMETA [Suspect]
     Indication: METASTASES TO BONE
     Dosage: UNK Q4WKS
     Dates: end: 20050201
  22. COUMADIN [Concomitant]
     Dosage: 1 MG, QD
     Route: 048
     Dates: start: 20050221
  23. KEPPRA [Concomitant]
     Dosage: 500 MG, BID
     Route: 048
     Dates: start: 20050923
  24. CHLORHEXIDINE DENTAL ^ACO^ [Concomitant]
     Dosage: .12 %, BID
     Route: 049
     Dates: start: 20070921
  25. OXYCONTIN [Concomitant]
     Dosage: 20 MG, BID
     Route: 048
     Dates: start: 20050308

REACTIONS (25)
  - DIABETES MELLITUS [None]
  - GINGIVAL PAIN [None]
  - GRANULOMA [None]
  - HYPOAESTHESIA [None]
  - JAW FRACTURE [None]
  - DENTAL FISTULA [None]
  - HAEMORRHAGE [None]
  - PRIMARY SEQUESTRUM [None]
  - TOOTH FRACTURE [None]
  - PAIN IN JAW [None]
  - OSTEOARTHRITIS [None]
  - BONE DISORDER [None]
  - INFECTION [None]
  - OSTEONECROSIS OF JAW [None]
  - EXCESSIVE GRANULATION TISSUE [None]
  - NEUROPATHY PERIPHERAL [None]
  - GINGIVAL ERYTHEMA [None]
  - OPEN WOUND [None]
  - LYMPHOMA [None]
  - PYREXIA [None]
  - PAIN [None]
  - BONE SWELLING [None]
  - BREAST CANCER IN SITU [None]
  - FISTULA DISCHARGE [None]
  - WOUND [None]
